FAERS Safety Report 8049090-8 (Version None)
Quarter: 2012Q1

REPORT INFORMATION
  Report Type: 
  Country: None (occurrence: None)
  Receive Date: 20120117
  Receipt Date: 20120109
  Transmission Date: 20120608
  Serious: Yes (Other)
  Sender: FDA-Public Use
  Company Number: US-PFIZER INC-2012006879

PATIENT
  Age: 41 Year
  Sex: Female

DRUGS (2)
  1. VERAPAMIL HCL [Concomitant]
     Dosage: 0.15MG/KG
     Route: 013
  2. METHYLPREDNISOLONE [Suspect]
     Dosage: 100MG/ DAY

REACTIONS (1)
  - CEREBRAL VASOCONSTRICTION [None]
